FAERS Safety Report 18262842 (Version 1)
Quarter: 2020Q3

REPORT INFORMATION
  Report Type: Spontaneous
  Country: AU (occurrence: AU)
  Receive Date: 20200914
  Receipt Date: 20200914
  Transmission Date: 20201103
  Serious: Yes (Life-Threatening, Disabling, Other)
  Sender: FDA-Public Use
  Company Number: None

PATIENT
  Age: 25 Year
  Sex: Female
  Weight: 77 kg

DRUGS (1)
  1. VALACYCLOVIR HYDROCHLORIDE. [Suspect]
     Active Substance: VALACYCLOVIR HYDROCHLORIDE
     Indication: HERPES SIMPLEX
     Dosage: ?          QUANTITY:1 TABLET(S);?
     Route: 048
     Dates: start: 20191002, end: 20191004

REACTIONS (38)
  - Bladder disorder [None]
  - Depressed mood [None]
  - Lethargy [None]
  - Dyspnoea [None]
  - Loss of personal independence in daily activities [None]
  - Abdominal distension [None]
  - Loss of libido [None]
  - Neuralgia [None]
  - Confusional state [None]
  - Pain [None]
  - Alopecia [None]
  - Muscle disorder [None]
  - Nightmare [None]
  - Impaired driving ability [None]
  - Abdominal pain [None]
  - Weight increased [None]
  - Appetite disorder [None]
  - Aggression [None]
  - Irritability [None]
  - Feeling abnormal [None]
  - Amnesia [None]
  - Insomnia [None]
  - Dysmenorrhoea [None]
  - Vulvovaginal dryness [None]
  - Suicidal ideation [None]
  - Gastrointestinal disorder [None]
  - Formication [None]
  - Nausea [None]
  - Rash erythematous [None]
  - Night sweats [None]
  - Acne [None]
  - Paraesthesia [None]
  - Panic attack [None]
  - Headache [None]
  - Gait disturbance [None]
  - Crying [None]
  - Disturbance in attention [None]
  - Hepatic steatosis [None]

NARRATIVE: CASE EVENT DATE: 20191007
